FAERS Safety Report 4427567-1 (Version None)
Quarter: 2004Q3

REPORT INFORMATION
  Report Type: 
  Country: None (occurrence: None)
  Receive Date: 20040817
  Receipt Date: 20020904
  Transmission Date: 20050211
  Serious: Yes (Disabling, Other)
  Sender: FDA-Public Use
  Company Number: US-MERCK-0209USA00433

PATIENT
  Age: 39 Year
  Sex: Male
  Weight: 98 kg

DRUGS (3)
  1. SOMA [Concomitant]
     Route: 065
  2. NAPROSYN [Concomitant]
     Route: 065
  3. VIOXX [Suspect]
     Indication: BACK PAIN
     Route: 048
     Dates: start: 20010101, end: 20021001

REACTIONS (19)
  - ARTHRALGIA [None]
  - BACK INJURY [None]
  - CEREBROVASCULAR ACCIDENT [None]
  - DRUG INEFFECTIVE [None]
  - DYSPNOEA [None]
  - EAR PAIN [None]
  - FALL [None]
  - HEART RATE IRREGULAR [None]
  - HYPOAESTHESIA [None]
  - INTERVERTEBRAL DISC DISORDER [None]
  - LUMBAR SPINAL STENOSIS [None]
  - MOVEMENT DISORDER [None]
  - MUSCULOSKELETAL STIFFNESS [None]
  - MYOFASCIAL PAIN SYNDROME [None]
  - NON-CARDIAC CHEST PAIN [None]
  - OCULAR ICTERUS [None]
  - ONYCHOMYCOSIS [None]
  - ROTATOR CUFF SYNDROME [None]
  - VIRAL INFECTION [None]
